FAERS Safety Report 4744702-6 (Version None)
Quarter: 2005Q3

REPORT INFORMATION
  Report Type: 
  Country: None (occurrence: None)
  Receive Date: 20050815
  Receipt Date: 20050801
  Transmission Date: 20060218
  Serious: Yes (Hospitalization)
  Sender: FDA-Public Use
  Company Number: 2005AP04226

PATIENT
  Sex: Female
  Weight: 37.2 kg

DRUGS (7)
  1. IRESSA [Suspect]
     Indication: LUNG ADENOCARCINOMA
     Route: 048
     Dates: start: 20050610, end: 20050726
  2. RINDERON [Suspect]
     Indication: METASTASES TO CENTRAL NERVOUS SYSTEM
     Route: 048
     Dates: start: 20050620
  3. SELBEX [Concomitant]
     Indication: GASTRITIS
     Route: 048
     Dates: start: 20050608
  4. BIOFERMIN [Concomitant]
     Indication: GASTROINTESTINAL DISORDER
     Route: 048
     Dates: start: 20050620
  5. ZANTAC [Concomitant]
     Indication: GASTRITIS
     Route: 048
     Dates: start: 20050620
  6. VOLTAREN [Concomitant]
     Indication: PAIN
     Route: 048
     Dates: start: 20050726
  7. RADIATION THERAPY [Concomitant]
     Dates: start: 20050624, end: 20050707

REACTIONS (7)
  - BODY TEMPERATURE DECREASED [None]
  - FEELING HOT [None]
  - FLUSHING [None]
  - MALAISE [None]
  - PNEUMOCYSTIS JIROVECI PNEUMONIA [None]
  - POLLAKIURIA [None]
  - RASH [None]
